FAERS Safety Report 17881055 (Version 2)
Quarter: 2020Q3

REPORT INFORMATION
  Report Type: Spontaneous
  Country: US (occurrence: US)
  Receive Date: 20200610
  Receipt Date: 20200924
  Transmission Date: 20201103
  Serious: No
  Sender: FDA-Public Use
  Company Number: US-PFIZER INC-2020221287

PATIENT
  Sex: Male
  Weight: 91 kg

DRUGS (7)
  1. LOSARTAN. [Concomitant]
     Active Substance: LOSARTAN
     Indication: BLOOD PRESSURE ABNORMAL
     Dosage: 100 MG, 1X/DAY (EVERYDAY)
  2. MACUVIT [Concomitant]
     Indication: MACULAR DEGENERATION
     Dosage: UNK
  3. LYRICA [Suspect]
     Active Substance: PREGABALIN
     Indication: NEUROPATHY PERIPHERAL
     Dosage: 75 MG, 3X/DAY (75 MG THREE TIMES A DAY EVERY MONTH)
  4. ROPINIROLE. [Concomitant]
     Active Substance: ROPINIROLE
     Indication: RESTLESS LEGS SYNDROME
     Dosage: 25 MG, 1X/DAY
  5. GABAPENTIN. [Concomitant]
     Active Substance: GABAPENTIN
     Dosage: 300 MG, 3X/DAY (ONE CAPSULE 3 TIMES A DAY 300 MG)
  6. LUTEIN [Concomitant]
     Active Substance: LUTEIN
     Dosage: UNK
  7. LYRICA [Suspect]
     Active Substance: PREGABALIN
     Dosage: 50 MG (STARTED OFF WITH 50 MG)

REACTIONS (2)
  - Oedema [Unknown]
  - Joint swelling [Unknown]
